FAERS Safety Report 15489028 (Version 1)
Quarter: 2018Q4

REPORT INFORMATION
  Report Type: Spontaneous
  Country: OM (occurrence: OM)
  Receive Date: 20181011
  Receipt Date: 20181011
  Transmission Date: 20190205
  Serious: Yes (Other)
  Sender: FDA-Public Use
  Company Number: OM-IMPAX LABORATORIES, INC-2018-IPXL-03340

PATIENT
  Age: 25 Year
  Sex: Female

DRUGS (1)
  1. CHLOROQUINE PHOSPHATE. [Suspect]
     Active Substance: CHLOROQUINE PHOSPHATE
     Indication: ABORTION INDUCED
     Dosage: UNK
     Route: 065

REACTIONS (2)
  - Abortion induced [Unknown]
  - Maternal exposure during pregnancy [Unknown]
